FAERS Safety Report 7602990-2 (Version None)
Quarter: 2011Q3

REPORT INFORMATION
  Report Type: 
  Country: None (occurrence: None)
  Receive Date: 20110712
  Receipt Date: 20110609
  Transmission Date: 20111222
  Serious: No
  Sender: FDA-Public Use
  Company Number: A0930930A

PATIENT
  Age: 68 Year
  Sex: Male

DRUGS (5)
  1. GLYBURIDE [Concomitant]
  2. SINGULAIR [Concomitant]
  3. CARVEDILOL [Concomitant]
  4. METFORMIN HCL [Concomitant]
  5. JALYN [Suspect]
     Indication: NOCTURIA
     Dosage: 1CAP PER DAY
     Route: 048
     Dates: start: 20110526

REACTIONS (1)
  - ERECTILE DYSFUNCTION [None]
